FAERS Safety Report 6223935-6 (Version None)
Quarter: 2009Q2

REPORT INFORMATION
  Report Type: 
  Country: None (occurrence: None)
  Receive Date: 20090612
  Receipt Date: 20090304
  Transmission Date: 20091009
  Serious: No
  Sender: FDA-Public Use
  Company Number: US-ABBOTT-09P-163-0560911-00

PATIENT
  Sex: Female
  Weight: 100.79 kg

DRUGS (9)
  1. HUMIRA [Suspect]
     Indication: CROHN'S DISEASE
     Dosage: LOADING DOSE
     Route: 058
     Dates: start: 20080528, end: 20080528
  2. HUMIRA [Suspect]
     Dates: start: 20080612, end: 20080612
  3. HUMIRA [Suspect]
     Dates: start: 20080626
  4. COLAZA [Concomitant]
     Indication: CROHN'S DISEASE
     Dosage: UNKNOWN
  5. TOPICAL CREAMS [Concomitant]
     Indication: ECZEMA
     Dosage: UNKNOWN
     Route: 061
  6. BENADRYL [Concomitant]
     Indication: ECZEMA
     Dosage: UNKNOWN
  7. CLARITIN [Concomitant]
     Indication: HYPERSENSITIVITY
     Dosage: UNKNOWN
  8. PRILOSEC [Concomitant]
     Indication: CROHN'S DISEASE
     Dosage: UNKNOWN
  9. UNSPECIFIED MEDICATION [Concomitant]
     Indication: INSOMNIA
     Dosage: UNKNOWN
     Route: 042
     Dates: start: 20090127, end: 20090127

REACTIONS (6)
  - ANAL SPHINCTER HYPERTONIA [None]
  - CROHN'S DISEASE [None]
  - DRUG INEFFECTIVE [None]
  - INFLAMMATION [None]
  - PAINFUL DEFAECATION [None]
  - SCAR [None]
